FAERS Safety Report 5154711-3 (Version None)
Quarter: 2006Q4

REPORT INFORMATION
  Report Type: 
  Country: None (occurrence: None)
  Receive Date: 20061116
  Receipt Date: 20061116
  Transmission Date: 20070319
  Serious: Yes (Life-Threatening, Hospitalization)
  Sender: FDA-Public Use
  Company Number: None

PATIENT
  Age: 60 Year
  Sex: Female
  Weight: 82.5547 kg

DRUGS (10)
  1. LISINOPRIL [Suspect]
     Indication: HYPERTENSION
     Dosage: ORAL
     Route: 048
  2. MAXZIDE [Suspect]
     Indication: URINARY TRACT INFECTION
  3. LEVOFLOXACIN [Suspect]
     Dosage: 500 G PO DAILY X 10D
     Route: 048
  4. METFORMIN [Concomitant]
  5. PIOGLITAZONE HCL [Concomitant]
  6. GLYBURIDE [Concomitant]
  7. SIMVASTATIN [Concomitant]
  8. ASPIRIN [Concomitant]
  9. RANITIDINE [Concomitant]
  10. LEVOTHYROXINE SODIUM [Concomitant]

REACTIONS (4)
  - ASTHENIA [None]
  - BLOOD POTASSIUM INCREASED [None]
  - TREMOR [None]
  - URINARY TRACT INFECTION [None]
